FAERS Safety Report 17007078 (Version 1)
Quarter: 2019Q4

REPORT INFORMATION
  Report Type: Report from Study
  Country: DE (occurrence: DE)
  Receive Date: 20191107
  Receipt Date: 20191107
  Transmission Date: 20200122
  Serious: Yes (Hospitalization)
  Sender: FDA-Public Use
  Company Number: DE-BIOGEN-2019BI00802678

PATIENT
  Age: 40 Year
  Sex: Female

DRUGS (2)
  1. RITUXAN [Suspect]
     Active Substance: RITUXIMAB
     Indication: PRODUCT USED FOR UNKNOWN INDICATION
     Route: 065
  2. TECFIDERA [Suspect]
     Active Substance: DIMETHYL FUMARATE
     Indication: NEUROMYELITIS OPTICA SPECTRUM DISORDER
     Dosage: MAINTENANCE DOSE
     Route: 048
     Dates: start: 20140227, end: 2017

REACTIONS (5)
  - Neuromyelitis optica spectrum disorder [Not Recovered/Not Resolved]
  - Sepsis [Recovered/Resolved]
  - Respiratory arrest [Recovered/Resolved]
  - Off label use [Recovered/Resolved]
  - Appendicitis [Recovered/Resolved]

NARRATIVE: CASE EVENT DATE: 20140227
